FAERS Safety Report 15540626 (Version 1)
Quarter: 2018Q4

REPORT INFORMATION
  Report Type: Spontaneous
  Country: IT (occurrence: IT)
  Receive Date: 20181023
  Receipt Date: 20181023
  Transmission Date: 20190205
  Serious: Yes (Other)
  Sender: FDA-Public Use
  Company Number: IT-RICON PHARMA, LLC-RIC201810-001018

PATIENT
  Age: 65 Year
  Sex: Male

DRUGS (5)
  1. ASPIRIN. [Suspect]
     Active Substance: ASPIRIN
  2. DICLOFENAC [Suspect]
     Active Substance: DICLOFENAC
  3. METAMIZOL [Suspect]
     Active Substance: METAMIZOLE SODIUM
  4. TRAMADOL. [Concomitant]
     Active Substance: TRAMADOL
  5. PARACETAMOL [Suspect]
     Active Substance: ACETAMINOPHEN

REACTIONS (2)
  - Angioedema [Unknown]
  - Urticaria [Unknown]
